FAERS Safety Report 23187649 (Version 4)
Quarter: 2024Q2

REPORT INFORMATION
  Report Type: Report from Study
  Country: KR (occurrence: KR)
  Receive Date: 20231115
  Receipt Date: 20240508
  Transmission Date: 20240716
  Serious: Yes (Other)
  Sender: FDA-Public Use
  Company Number: KR-TAKEDA-2023TUS110134

PATIENT
  Sex: Male

DRUGS (12)
  1. BRIGATINIB [Suspect]
     Active Substance: BRIGATINIB
     Indication: Non-small cell lung cancer
     Dosage: 90 MILLIGRAM, QD
     Route: 065
     Dates: start: 20210416, end: 20210422
  2. BRIGATINIB [Suspect]
     Active Substance: BRIGATINIB
     Dosage: 180 MILLIGRAM, QD
     Route: 065
     Dates: start: 20210423
  3. LYRICA [Suspect]
     Active Substance: PREGABALIN
     Indication: Spinal disorder
     Dosage: 150 MILLIGRAM
     Route: 048
     Dates: start: 20210402
  4. NORVASC [Concomitant]
     Active Substance: AMLODIPINE BESYLATE
     Indication: Hypertension
     Dosage: 5 MILLIGRAM
     Route: 048
     Dates: start: 20210331, end: 20210502
  5. MAGNESIUM HYDROXIDE [Concomitant]
     Active Substance: MAGNESIUM HYDROXIDE
     Indication: Constipation prophylaxis
     Dosage: 500 MILLIGRAM
     Route: 048
     Dates: start: 20210316, end: 202105
  6. URSODIOL [Concomitant]
     Active Substance: URSODIOL
     Indication: Prophylaxis
     Dosage: 400 MILLIGRAM
     Route: 048
     Dates: start: 20210320, end: 20210707
  7. NEREXONE SR [Concomitant]
     Indication: Spinal disorder
     Dosage: UNK
     Route: 048
     Dates: start: 20210401
  8. FENTANYL [Concomitant]
     Active Substance: FENTANYL\FENTANYL CITRATE
     Indication: Prophylaxis
     Dosage: UNK
     Route: 023
     Dates: start: 20210419
  9. ACTIQ [Concomitant]
     Active Substance: FENTANYL CITRATE
     Indication: Pain
     Dosage: 200 MICROGRAM
     Route: 048
     Dates: start: 20210422
  10. ACETAMINOPHEN\TRAMADOL [Concomitant]
     Active Substance: ACETAMINOPHEN\TRAMADOL
     Indication: Prophylaxis
     Dosage: UNK
     Route: 048
     Dates: start: 20210416, end: 20210418
  11. Trisone kit [Concomitant]
     Indication: Prophylaxis
     Dosage: UNK
     Route: 042
     Dates: start: 20210416, end: 20210419
  12. HERBALS [Concomitant]
     Active Substance: HERBALS
     Indication: Gastrooesophageal reflux disease
     Dosage: UNK
     Route: 048
     Dates: start: 20210416

REACTIONS (1)
  - Neuromyopathy [Recovered/Resolved]

NARRATIVE: CASE EVENT DATE: 20210503
